FAERS Safety Report 20428433 (Version 9)
Quarter: 2022Q2

REPORT INFORMATION
  Report Type: Report from Study
  Country: US (occurrence: US)
  Receive Date: 20220204
  Receipt Date: 20220614
  Transmission Date: 20220720
  Serious: Yes (Other)
  Sender: FDA-Public Use
  Company Number: US-GLAXOSMITHKLINE-US2022013046

PATIENT

DRUGS (9)
  1. NIRAPARIB [Suspect]
     Active Substance: NIRAPARIB
     Indication: Ovarian cancer
     Dosage: 200 MG, QD
     Route: 048
     Dates: start: 20220120, end: 20220218
  2. NIRAPARIB [Suspect]
     Active Substance: NIRAPARIB
     Dosage: 100 MG, QD
     Route: 048
     Dates: start: 20220304
  3. NIRAPARIB [Suspect]
     Active Substance: NIRAPARIB
     Dosage: 100 MG, QD
     Route: 048
  4. NIRAPARIB [Suspect]
     Active Substance: NIRAPARIB
     Dosage: 100 MG, QD
     Route: 048
  5. AVASTIN [Concomitant]
     Active Substance: BEVACIZUMAB
     Indication: Product used for unknown indication
     Dosage: UNK (Q3 WEEKS)
     Route: 042
  6. SENNA [Concomitant]
     Active Substance: SENNA LEAF\SENNOSIDES\SENNOSIDES A AND B
     Indication: Product used for unknown indication
     Dosage: UNK UNK,  Z (PRN)
  7. NORVASC [Concomitant]
     Active Substance: AMLODIPINE BESYLATE
     Indication: Blood pressure increased
     Dosage: 10 MG, QD
  8. NORVASC [Concomitant]
     Active Substance: AMLODIPINE BESYLATE
     Dosage: 5 MG, QD
  9. SMOOTH MOVE HERBAL STIMULANT LAXATIVE TEA [Concomitant]
     Indication: Product used for unknown indication
     Dosage: UNK

REACTIONS (26)
  - Thrombocytopenia [Recovered/Resolved]
  - Neuropathy peripheral [Recovering/Resolving]
  - Fatigue [Not Recovered/Not Resolved]
  - Asthenia [Not Recovered/Not Resolved]
  - Blood pressure increased [Not Recovered/Not Resolved]
  - Sleep disorder [Recovered/Resolved]
  - Restless legs syndrome [Recovered/Resolved]
  - Heart rate increased [Not Recovered/Not Resolved]
  - Pain in extremity [Recovering/Resolving]
  - Constipation [Not Recovered/Not Resolved]
  - Dizziness [Not Recovered/Not Resolved]
  - Nausea [Not Recovered/Not Resolved]
  - Headache [Recovered/Resolved]
  - Decreased appetite [Not Recovered/Not Resolved]
  - Insomnia [Recovering/Resolving]
  - Hot flush [Not Recovered/Not Resolved]
  - Dyspnoea [Not Recovered/Not Resolved]
  - Platelet count decreased [Not Recovered/Not Resolved]
  - Pruritus [Not Recovered/Not Resolved]
  - Carbohydrate antigen 125 increased [Not Recovered/Not Resolved]
  - Haemorrhoids [Recovered/Resolved]
  - Arthralgia [Recovering/Resolving]
  - Pain of skin [Recovering/Resolving]
  - Fluid intake reduced [Recovering/Resolving]
  - Product dose omission issue [Recovered/Resolved]
  - Drug monitoring procedure not performed [Unknown]

NARRATIVE: CASE EVENT DATE: 20220101
